FAERS Safety Report 6472433-3 (Version None)
Quarter: 2009Q4

REPORT INFORMATION
  Report Type: 
  Country: None (occurrence: None)
  Receive Date: 20091203
  Receipt Date: 20091118
  Transmission Date: 20100525
  Serious: Yes (Other)
  Sender: FDA-Public Use
  Company Number: JP-GENENTECH-295270

PATIENT
  Age: 62 Year
  Sex: Female

DRUGS (5)
  1. AVASTIN [Suspect]
     Indication: COLORECTAL CANCER METASTATIC
  2. IRINOTECAN HYDROCHLORIDE [Concomitant]
     Indication: RECTAL CANCER
  3. FLUOROURACIL [Concomitant]
     Indication: RECTAL CANCER
  4. LEVOLEUCOVORIN CALCIUM [Concomitant]
     Indication: DRUG USE FOR UNKNOWN INDICATION
  5. OXALIPLATIN [Concomitant]
     Indication: RECTAL CANCER

REACTIONS (2)
  - ILEAL PERFORATION [None]
  - INTESTINAL OBSTRUCTION [None]
